FAERS Safety Report 20520487 (Version 1)
Quarter: 2022Q1

REPORT INFORMATION
  Report Type: Spontaneous
  Country: US (occurrence: US)
  Receive Date: 20220225
  Receipt Date: 20220225
  Transmission Date: 20220423
  Serious: Yes (Other)
  Sender: FDA-Public Use
  Company Number: US-DSPHARMA-2022SUN000659

PATIENT
  Sex: Female

DRUGS (3)
  1. LATUDA [Suspect]
     Active Substance: LURASIDONE HYDROCHLORIDE
     Indication: Aggression
     Dosage: 20 MG, QD
     Route: 048
     Dates: start: 202112
  2. LATUDA [Suspect]
     Active Substance: LURASIDONE HYDROCHLORIDE
     Indication: Autism spectrum disorder
     Dosage: 20 MG, BID
     Route: 048
     Dates: start: 202201
  3. TOPIRAMATE [Concomitant]
     Active Substance: TOPIRAMATE
     Dosage: 100 MG
     Route: 048

REACTIONS (9)
  - Tardive dyskinesia [Unknown]
  - Logorrhoea [Not Recovered/Not Resolved]
  - Disturbance in attention [Not Recovered/Not Resolved]
  - Anger [Unknown]
  - Drug ineffective for unapproved indication [Unknown]
  - Restlessness [Not Recovered/Not Resolved]
  - Increased appetite [Not Recovered/Not Resolved]
  - Off label use [Unknown]
  - Product use in unapproved indication [Unknown]
